FAERS Safety Report 7260267-1 (Version None)
Quarter: 2011Q1

REPORT INFORMATION
  Report Type: 
  Country: None (occurrence: None)
  Receive Date: 20110130
  Receipt Date: 20100908
  Transmission Date: 20110831
  Serious: No
  Sender: FDA-Public Use
  Company Number: US-ABBOTT-10P-163-0670004-00

PATIENT
  Age: 49 Year
  Sex: Male

DRUGS (7)
  1. HUMIRA [Suspect]
     Indication: PSORIASIS
     Dates: start: 20100801
  2. CRESTOR [Concomitant]
     Indication: BLOOD CHOLESTEROL INCREASED
     Dosage: DAILY
  3. MUCINEX D [Concomitant]
     Indication: RESPIRATORY TRACT CONGESTION
  4. BENICAR [Concomitant]
     Indication: HYPERTENSION
     Dosage: DAILY
  5. FLOMAX [Concomitant]
     Indication: PROSTATIC DISORDER
  6. NEXIUM [Concomitant]
     Indication: GASTROOESOPHAGEAL REFLUX DISEASE
  7. SINGULAIR [Concomitant]
     Indication: HYPERSENSITIVITY

REACTIONS (3)
  - ARTHRALGIA [None]
  - INJECTION SITE PAIN [None]
  - FATIGUE [None]
